FAERS Safety Report 10173281 (Version 1)
Quarter: 2014Q2

REPORT INFORMATION
  Report Type: Spontaneous
  Country: US (occurrence: None)
  Receive Date: 20140424
  Receipt Date: 20140424
  Transmission Date: 20141212
  Serious: Yes (Other)
  Sender: FDA-Public Use
  Company Number: FK201305321

PATIENT
  Age: 80 Year
  Sex: Female

DRUGS (1)
  1. HEPARIN SODIUM INJECTION, USP (HEPARIN SODIUM) (HEPARIN SODIUM) [Suspect]
     Indication: ANTICOAGULANT THERAPY
     Dosage: NOT OTHERWISE SPECIFIED
     Route: 042
     Dates: start: 20131209, end: 20131209

REACTIONS (2)
  - Cerebrovascular accident [None]
  - Drug ineffective [None]
